FAERS Safety Report 8549676-8 (Version None)
Quarter: 2012Q3

REPORT INFORMATION
  Report Type: 
  Country: None (occurrence: None)
  Receive Date: 20120730
  Receipt Date: 20120723
  Transmission Date: 20120928
  Serious: Yes (Other)
  Sender: FDA-Public Use
  Company Number: US-PFIZER INC-2011022350

PATIENT
  Sex: Female
  Weight: 77.098 kg

DRUGS (11)
  1. ALPRAZOLAM [Suspect]
     Indication: STRESS
     Dosage: 1MG THREE OR FOUR TIMES A DAY
     Route: 048
  2. MS CONTIN [Suspect]
     Indication: MYALGIA
     Dosage: 30 MG, 2X/DAY
  3. LYRICA [Suspect]
     Indication: BURNING SENSATION
     Dosage: DAILY
     Route: 048
  4. LYRICA [Suspect]
     Indication: NERVE COMPRESSION
     Dosage: 50 MG, 3X/DAY
  5. KADIAN [Suspect]
     Indication: MYALGIA
     Dosage: 20 MG, 2X/DAY
  6. LYRICA [Suspect]
     Indication: HYPOAESTHESIA
     Dosage: 25 MG, 3X/DAY
     Route: 048
  7. ALPRAZOLAM [Suspect]
     Indication: NEURALGIA
  8. PREDNISONE TAB [Suspect]
     Indication: PAIN
  9. TEMAZEPAM [Suspect]
     Indication: SLEEP DISORDER
     Dosage: 50 MG, DAILY
  10. HYDROCODONE BITARTRATE + ACETAMINOPHEN [Suspect]
     Indication: PAIN
     Dosage: 10/250 MG, 4X/DAY
  11. PREDNISONE TAB [Suspect]
     Indication: OEDEMA PERIPHERAL
     Dosage: UNK

REACTIONS (10)
  - AMNESIA [None]
  - HOT FLUSH [None]
  - OEDEMA PERIPHERAL [None]
  - HYPERHIDROSIS [None]
  - WEIGHT INCREASED [None]
  - DRUG INEFFECTIVE [None]
  - INCREASED APPETITE [None]
  - SWELLING [None]
  - CONSTIPATION [None]
  - PAIN [None]
